FAERS Safety Report 4852365-4 (Version None)
Quarter: 2005Q4

REPORT INFORMATION
  Report Type: 
  Country: None (occurrence: None)
  Receive Date: 20051209
  Receipt Date: 20051129
  Transmission Date: 20060501
  Serious: Yes (Hospitalization, Other)
  Sender: FDA-Public Use
  Company Number: 2003189331JP

PATIENT
  Age: 61 Year
  Sex: Male

DRUGS (4)
  1. IRINOTECAN HCL [Suspect]
     Indication: COLORECTAL CANCER
     Dosage: 100 MG (CYCLIC); INTRAVENOUS
     Route: 042
     Dates: start: 20031015, end: 20031029
  2. ANTINEOPLASTIC AGENTS [Concomitant]
  3. ZANTAC [Concomitant]
  4. KYTRIL [Concomitant]

REACTIONS (5)
  - DECREASED APPETITE [None]
  - DRUG INTERACTION [None]
  - INTERSTITIAL LUNG DISEASE [None]
  - MALAISE [None]
  - NEUTROPENIA [None]
